FAERS Safety Report 19143995 (Version 1)
Quarter: 2021Q2

REPORT INFORMATION
  Report Type: Spontaneous
  Country: DE (occurrence: DE)
  Receive Date: 20210416
  Receipt Date: 20210416
  Transmission Date: 20210717
  Serious: Yes (Hospitalization)
  Sender: FDA-Public Use
  Company Number: DE-DRREDDYS-GER/GER/21/0133984

PATIENT
  Age: 35 Month
  Sex: Male
  Weight: 14 kg

DRUGS (1)
  1. RAMIPRIL COMP 5/25 [Suspect]
     Active Substance: HYDROCHLOROTHIAZIDE\RAMIPRIL
     Indication: ACCIDENTAL EXPOSURE TO PRODUCT BY CHILD
     Dosage: DAILY DOSE: 1 DF DOSAGE FORM EVERY TOTAL
     Route: 048
     Dates: start: 20200510, end: 20200510

REACTIONS (3)
  - Accidental exposure to product by child [Recovered/Resolved]
  - Product storage error [Recovered/Resolved]
  - No adverse event [Recovered/Resolved]

NARRATIVE: CASE EVENT DATE: 20200510
